FAERS Safety Report 10926753 (Version 1)
Quarter: 2015Q1

REPORT INFORMATION
  Report Type: Spontaneous
  Country: US (occurrence: US)
  Receive Date: 20150318
  Receipt Date: 20150318
  Transmission Date: 20150721
  Serious: No
  Sender: FDA-Public Use
  Company Number: US-ELI_LILLY_AND_COMPANY-US201502006732

PATIENT
  Sex: Male

DRUGS (4)
  1. PRAVASTATIN [Concomitant]
     Active Substance: PRAVASTATIN\PRAVASTATIN SODIUM
  2. ASPIRIN                            /00002701/ [Concomitant]
     Active Substance: ASPIRIN
  3. EFFIENT [Suspect]
     Active Substance: PRASUGREL HYDROCHLORIDE
     Indication: STENT PLACEMENT
     Dosage: 5 MG, UNK
     Route: 065
     Dates: start: 201410
  4. METOPROLOL [Concomitant]
     Active Substance: METOPROLOL

REACTIONS (1)
  - White blood cell count increased [Not Recovered/Not Resolved]
